FAERS Safety Report 9937285 (Version 1)
Quarter: 2014Q1

REPORT INFORMATION
  Report Type: Spontaneous
  Country: US (occurrence: US)
  Receive Date: 20140302
  Receipt Date: 20140302
  Transmission Date: 20141002
  Serious: No
  Sender: FDA-Public Use
  Company Number: US-009507513-1402USA012733

PATIENT
  Age: 73 Year
  Sex: Male

DRUGS (1)
  1. LOSARTAN POTASSIUM TABLETS [Suspect]
     Dosage: UNK
     Route: 048
     Dates: start: 20140204, end: 20140209

REACTIONS (1)
  - Drug ineffective [Unknown]
